FAERS Safety Report 15736048 (Version 1)
Quarter: 2018Q4

REPORT INFORMATION
  Report Type: Spontaneous
  Country: FR (occurrence: FR)
  Receive Date: 20181218
  Receipt Date: 20181218
  Transmission Date: 20190205
  Serious: Yes (Death)
  Sender: FDA-Public Use
  Company Number: FR-TEVA-2018-FR-987654

PATIENT
  Age: 85 Year
  Sex: Male
  Weight: 75 kg

DRUGS (13)
  1. NEBIVOLOL. [Concomitant]
     Active Substance: NEBIVOLOL
  2. CIPROFLOXACINE [Suspect]
     Active Substance: CIPROFLOXACIN
     Indication: SEPSIS
     Dosage: 800 MILLIGRAM DAILY;
     Route: 041
     Dates: start: 20181113, end: 20181116
  3. IPRATROPIUM (BROMURE D^) MONOHYDRATE [Concomitant]
  4. CALCIPARINE [Concomitant]
     Active Substance: HEPARIN CALCIUM
  5. PARACETAMOL [Concomitant]
     Active Substance: ACETAMINOPHEN
  6. FUCIDINE 250 MG, COMPRIM? PELLICUL? [Suspect]
     Active Substance: FUSIDIC ACID
     Indication: SEPSIS
     Dosage: 1500 MILLIGRAM DAILY;
     Route: 048
     Dates: start: 20181021, end: 20181116
  7. KARDEGIC [Concomitant]
     Active Substance: ASPIRIN DL-LYSINE
  8. PERMIXON 160 MG, G?LULE [Concomitant]
     Active Substance: HERBALS\SAW PALMETTO
  9. CEFTAZIDIME. [Suspect]
     Active Substance: CEFTAZIDIME
     Indication: SEPSIS
     Dosage: 3 GRAM DAILY;
     Route: 041
     Dates: start: 20181113, end: 20181116
  10. LINEZOLIDE [Suspect]
     Active Substance: LINEZOLID
     Indication: SEPSIS
     Dosage: 1200 MILLIGRAM DAILY;
     Route: 041
     Dates: start: 20181021, end: 20181116
  11. SALBUTAMOL [Concomitant]
     Active Substance: ALBUTEROL
  12. TAMSULOSINE [Concomitant]
     Active Substance: TAMSULOSIN HYDROCHLORIDE
  13. CETIRIZINE (DICHLORHYDRATE DE) [Concomitant]
     Active Substance: CETIRIZINE HYDROCHLORIDE

REACTIONS (1)
  - Confusional state [Fatal]

NARRATIVE: CASE EVENT DATE: 20181114
